FAERS Safety Report 8729629 (Version 2)
Quarter: 2015Q2

REPORT INFORMATION
  Report Type: Report from Study
  Country: US (occurrence: US)
  Receive Date: 20120817
  Receipt Date: 20150625
  Transmission Date: 20150821
  Serious: Yes (Hospitalization)
  Sender: FDA-Public Use
  Company Number: US-ROCHE-1101588

PATIENT
  Sex: Male

DRUGS (5)
  1. ECOTRIN [Concomitant]
     Active Substance: ASPIRIN
     Route: 065
  2. NITRO-DUR [Concomitant]
     Active Substance: NITROGLYCERIN
     Route: 065
  3. DIGOXIN. [Concomitant]
     Active Substance: DIGOXIN
     Route: 065
  4. HEPARIN [Concomitant]
     Active Substance: HEPARIN SODIUM
  5. ACTIVASE [Suspect]
     Active Substance: ALTEPLASE
     Indication: ACUTE MYOCARDIAL INFARCTION
     Route: 042
     Dates: start: 19950707

REACTIONS (12)
  - Tachycardia [Unknown]
  - Disease progression [Unknown]
  - Mitral valve incompetence [Unknown]
  - Chest pain [Unknown]
  - Left ventricular dysfunction [Unknown]
  - Tricuspid valve incompetence [Unknown]
  - Erythema [Unknown]
  - Extrasystoles [Unknown]
  - Electrocardiogram ST segment elevation [Unknown]
  - Headache [Unknown]
  - Pulmonary congestion [Unknown]
  - Abdominal pain [Unknown]
